FAERS Safety Report 5534701-9 (Version None)
Quarter: 2007Q4

REPORT INFORMATION
  Report Type: 
  Country: None (occurrence: None)
  Receive Date: 20071205
  Receipt Date: 20071121
  Transmission Date: 20080405
  Serious: Yes (Other)
  Sender: FDA-Public Use
  Company Number: ES-AMGEN-US254403

PATIENT
  Age: 57 Year
  Sex: Female

DRUGS (3)
  1. ENBREL [Suspect]
     Indication: RHEUMATOID ARTHRITIS
     Dosage: LYOPHILIZED 25 MG 2 PER WEEK
     Route: 058
     Dates: start: 20070101, end: 20070406
  2. ENBREL [Suspect]
     Route: 058
     Dates: start: 20070413, end: 20070711
  3. ENBREL [Suspect]
     Dosage: LYOPHILIZED 25 MG 2 PER WEEK
     Route: 058
     Dates: start: 20070101

REACTIONS (1)
  - DRUG EFFECT DECREASED [None]
